FAERS Safety Report 8224609-2 (Version None)
Quarter: 2012Q1

REPORT INFORMATION
  Report Type: 
  Country: None (occurrence: None)
  Receive Date: 20120321
  Receipt Date: 20120314
  Transmission Date: 20120608
  Serious: Yes (Other)
  Sender: FDA-Public Use
  Company Number: BR-ABBOTT-12P-020-0910314-00

PATIENT
  Sex: Female

DRUGS (4)
  1. METFORMIN HYDROCHLORIDE [Suspect]
     Indication: PRODUCT USED FOR UNKNOWN INDICATION
     Dosage: AT NIGHT
     Dates: start: 20110101, end: 20111001
  2. HUMIRA [Suspect]
     Indication: RHEUMATOID ARTHRITIS
     Dates: start: 20090901
  3. METFORMIN HYDROCHLORIDE [Suspect]
     Route: 048
     Dates: start: 20111001
  4. INSULIN [Concomitant]
     Indication: PRODUCT USED FOR UNKNOWN INDICATION
     Dosage: 3 IN 1 D, ALTERNATE BTWN ARM,THIGH,BELLY

REACTIONS (6)
  - EYE PAIN [None]
  - GASTROINTESTINAL DISORDER [None]
  - VISUAL ACUITY REDUCED [None]
  - INJECTION SITE PAIN [None]
  - DRUG INEFFECTIVE [None]
  - VISUAL IMPAIRMENT [None]
